FAERS Safety Report 23816178 (Version 1)
Quarter: 2024Q2

REPORT INFORMATION
  Report Type: Spontaneous
  Country: FR (occurrence: FR)
  Receive Date: 20240503
  Receipt Date: 20240503
  Transmission Date: 20240716
  Serious: Yes (Other)
  Sender: FDA-Public Use
  Company Number: None

PATIENT
  Age: 45 Year
  Sex: Female

DRUGS (6)
  1. BENDAMUSTINE [Suspect]
     Active Substance: BENDAMUSTINE
     Indication: Bone marrow conditioning regimen
     Dosage: 200 MILLIGRAM/SQ. METER (AT D-7 AND D-6 (BEAM CONDITIONING REGIMEN)
  2. BENDAMUSTINE [Suspect]
     Active Substance: BENDAMUSTINE
     Indication: Non-Hodgkin^s lymphoma stage III
     Dosage: 90 MILLIGRAM/SQ. METER (SIX COURSES OF R- BENDAMUSTINE D1/D28)
  3. MELPHALAN [Suspect]
     Active Substance: MELPHALAN
     Indication: Bone marrow conditioning regimen
     Dosage: 140 MILLIGRAM/SQ. METER (AT D-2 (BEAM CONDITIONING REGIMEN)
  4. CYTARABINE [Suspect]
     Active Substance: CYTARABINE
     Indication: Bone marrow conditioning regimen
     Dosage: UNK (12 HOUR (FROM D-6 TO D-3 (BEAM CONDITIONING REGIMEN))
  5. ETOPOSIDE [Suspect]
     Active Substance: ETOPOSIDE
     Indication: Bone marrow conditioning regimen
     Dosage: 200 MILLIGRAM/SQ. METER (200 MG/M2, 12 HOUR (FROM D-6 TO D-3 (BEAM CONDITIONING REGIMEN)
  6. RITUXIMAB [Concomitant]
     Active Substance: RITUXIMAB
     Indication: Non-Hodgkin^s lymphoma stage III
     Dosage: 375 MILLIGRAM/SQ. METER (SIX COURSES OF R- BENDAMUSTINE D1/D28)

REACTIONS (4)
  - Venoocclusive liver disease [Unknown]
  - Acute kidney injury [Recovered/Resolved]
  - Product use in unapproved indication [Unknown]
  - Thrombotic microangiopathy [Unknown]
